FAERS Safety Report 7328350-X (Version None)
Quarter: 2011Q1

REPORT INFORMATION
  Report Type: 
  Country: None (occurrence: None)
  Receive Date: 20110303
  Receipt Date: 20110217
  Transmission Date: 20110831
  Serious: Yes (Other)
  Sender: FDA-Public Use
  Company Number: US-MYLANLABS-2011S1003543

PATIENT
  Age: 11 Year
  Sex: Male
  Weight: 36 kg

DRUGS (7)
  1. NICARDIPINE HYDROCHLORIDE [Interacting]
     Dosage: 3 MICROG/KG/MIN
     Route: 041
  2. MYCOPHENOLATE MOFETIL [Concomitant]
     Indication: IMMUNOSUPPRESSION
     Route: 065
  3. NICARDIPINE HYDROCHLORIDE [Interacting]
     Indication: HYPERTENSION
     Route: 048
  4. TACROLIMUS [Interacting]
     Route: 065
  5. NIFEDIPINE [Concomitant]
     Indication: HYPERTENSION
     Route: 048
  6. TACROLIMUS [Suspect]
     Indication: IMMUNOSUPPRESSION
     Route: 065
  7. PREDNISONE [Concomitant]
     Indication: IMMUNOSUPPRESSION
     Route: 065

REACTIONS (3)
  - TRANSPLANT REJECTION [None]
  - DRUG LEVEL CHANGED [None]
  - DRUG INTERACTION [None]
